FAERS Safety Report 4918177-8 (Version None)
Quarter: 2006Q1

REPORT INFORMATION
  Report Type: 
  Country: None (occurrence: None)
  Receive Date: 20060215
  Receipt Date: 20060201
  Transmission Date: 20060701
  Serious: Yes (Other)
  Sender: FDA-Public Use
  Company Number: PHBS2005BR07188

PATIENT
  Age: 11 Month
  Sex: Female

DRUGS (1)
  1. AMINOFILINA (AMINOPHYLLINE) DROPS [Suspect]
     Indication: SLEEP DISORDER
     Dosage: 10 5 DROPS/NIGHT, ORAL
     Route: 048

REACTIONS (5)
  - AGITATION [None]
  - CRYING [None]
  - DRUG TOXICITY [None]
  - TACHYCARDIA [None]
  - WRONG DRUG ADMINISTERED [None]
